FAERS Safety Report 8175780-2 (Version None)
Quarter: 2012Q1

REPORT INFORMATION
  Report Type: 
  Country: None (occurrence: None)
  Receive Date: 20120228
  Receipt Date: 20120216
  Transmission Date: 20120608
  Serious: Yes (Hospitalization)
  Sender: FDA-Public Use
  Company Number: AUR-APL-2011-05827

PATIENT
  Age: 66 Year
  Sex: Female
  Weight: 59.4 kg

DRUGS (13)
  1. SIMVASTATIN [Suspect]
     Indication: BLOOD CHOLESTEROL
     Dosage: 80 MG (40 MG, 2 IN 1 D), ORAL
     Route: 048
     Dates: start: 20090227, end: 20090828
  2. ZOFRAN [Suspect]
     Indication: NAUSEA
     Dosage: 4 DOSAGE FORMS (1 DOSAGE FORMS, 1 IN 6 HR), ORAL
     Route: 048
     Dates: end: 20090828
  3. ARTIFICIAL TEARS (HYPROMELLOSE) [Concomitant]
  4. COLACE (DOCUSATE SODIUM) [Suspect]
     Indication: CONSTIPATION
     Dosage: 200 MG (100 MG, 2 IN 1 D), UNKNOWN
     Dates: start: 20070604
  5. PIOGLITAZONE HYDROCHLORIDE [Suspect]
     Indication: DIABETES MELLITUS
     Dosage: 30 MG, (30 MG, 1 IN 1 D), ORAL
     Route: 048
     Dates: start: 20070604
  6. CIPROFLOXACIN [Concomitant]
  7. RANITIDINE HYDROCHLORIDE [Suspect]
     Indication: ULCER
     Dosage: 300 MG (150 MG, 2 IN 1 D)
     Dates: end: 20090828
  8. FERGON [Suspect]
     Indication: IRON DEFICIENCY
     Dosage: 650 MG (325 MG, 2 IN 1 D), ORAL
     Route: 048
     Dates: start: 20090227, end: 20090828
  9. SUNITINIB MALATE [Suspect]
     Indication: RENAL CANCER
     Dosage: 100 MG (50 MG, 2 IN 1 D), ORAL
     Route: 048
     Dates: start: 20090601, end: 20090828
  10. ACTONEL [Concomitant]
  11. LORTAB [Suspect]
     Indication: APPETITE DISORDER
     Dosage: 4 DOSAGE FORMS (1 DOSAGE FORMS, 1 IN 6 HR),
     Dates: start: 20090825, end: 20090828
  12. EXTRA STRENGTH TYLENOL [Concomitant]
  13. ASPIRIN [Concomitant]

REACTIONS (8)
  - VOMITING [None]
  - ABDOMINAL PAIN [None]
  - MENTAL STATUS CHANGES [None]
  - FATIGUE [None]
  - HEADACHE [None]
  - COGNITIVE DISORDER [None]
  - MALAISE [None]
  - CONFUSIONAL STATE [None]
